FAERS Safety Report 7518138-9 (Version None)
Quarter: 2011Q2

REPORT INFORMATION
  Report Type: 
  Country: None (occurrence: None)
  Receive Date: 20110531
  Receipt Date: 20110531
  Transmission Date: 20111010
  Serious: Yes (Hospitalization)
  Sender: FDA-Public Use
  Company Number: None

PATIENT
  Sex: Female
  Weight: 76 kg

DRUGS (4)
  1. LEUCOVORIN CALCIUM [Suspect]
     Dosage: 692 MG
  2. FLUOROURACIL [Suspect]
     Dosage: 4844 MG
  3. BEVACIZUMAB (RHUMAB VEGF) [Suspect]
     Dosage: 374.5 MG
  4. OXALIPLATIN (ELOXATIN) [Suspect]
     Dosage: 147 MG

REACTIONS (1)
  - NEUTROPENIA [None]
